FAERS Safety Report 4489728-5 (Version None)
Quarter: 2004Q4

REPORT INFORMATION
  Report Type: 
  Country: None (occurrence: None)
  Receive Date: 20041101
  Receipt Date: 20030605
  Transmission Date: 20050328
  Serious: Yes (Hospitalization, Disabling)
  Sender: FDA-Public Use
  Company Number: US-MERCK-0306USA00626

PATIENT
  Sex: Female

DRUGS (1)
  1. VIOXX [Suspect]
     Indication: ARTHRALGIA
     Route: 048

REACTIONS (7)
  - ADVERSE EVENT [None]
  - ATHEROSCLEROSIS [None]
  - BASEDOW'S DISEASE [None]
  - COLONIC POLYP [None]
  - DIVERTICULUM [None]
  - HAEMORRHOIDS [None]
  - MASS [None]
